FAERS Safety Report 12535905 (Version 1)
Quarter: 2016Q3

REPORT INFORMATION
  Report Type: Spontaneous
  Country: US (occurrence: None)
  Receive Date: 20160706
  Receipt Date: 20160706
  Transmission Date: 20161109
  Serious: Yes (Other)
  Sender: FDA-Public Use
  Company Number: None

PATIENT
  Age: 51 Year
  Sex: Female

DRUGS (9)
  1. TAMSULOSIN [Concomitant]
     Active Substance: TAMSULOSIN
  2. AMPYRA [Suspect]
     Active Substance: DALFAMPRIDINE
     Indication: MULTIPLE SCLEROSIS
     Route: 048
     Dates: start: 201101
  3. OXYBUTYNIN [Concomitant]
     Active Substance: OXYBUTYNIN
  4. BACLOFEN. [Concomitant]
     Active Substance: BACLOFEN
  5. RITUXAN [Concomitant]
     Active Substance: RITUXIMAB
  6. DIVALPROEX [Concomitant]
     Active Substance: DIVALPROEX SODIUM
  7. RIZATRIPTAN. [Concomitant]
     Active Substance: RIZATRIPTAN
  8. QUETIAPINE. [Concomitant]
     Active Substance: QUETIAPINE
  9. ASPIRIN. [Concomitant]
     Active Substance: ASPIRIN

REACTIONS (1)
  - Escherichia urinary tract infection [None]

NARRATIVE: CASE EVENT DATE: 20160701
